FAERS Safety Report 14045662 (Version 1)
Quarter: 2017Q4

REPORT INFORMATION
  Report Type: Spontaneous
  Country: US (occurrence: US)
  Receive Date: 20171005
  Receipt Date: 20171005
  Transmission Date: 20180321
  Serious: Yes (Other)
  Sender: FDA-Public Use
  Company Number: US-PRINSTON PHARMACEUTICAL INC.-2017PRN00450

PATIENT
  Sex: Female
  Weight: 72.56 kg

DRUGS (1)
  1. HYDROCHLOROTHIAZIDE. [Suspect]
     Active Substance: HYDROCHLOROTHIAZIDE
     Indication: HYPERTENSION
     Dosage: 25 MG, EVERY 48 HOURS
     Route: 048
     Dates: start: 2002, end: 2009

REACTIONS (5)
  - Barrett^s oesophagus [Recovering/Resolving]
  - Gastrooesophageal reflux disease [Unknown]
  - Abdominal pain upper [Recovering/Resolving]
  - Pancreatic cyst [Unknown]
  - Coeliac disease [Unknown]

NARRATIVE: CASE EVENT DATE: 2002
